FAERS Safety Report 4360718-6 (Version None)
Quarter: 2004Q2

REPORT INFORMATION
  Report Type: 
  Country: None (occurrence: None)
  Receive Date: 20040514
  Receipt Date: 20040510
  Transmission Date: 20050107
  Serious: Yes (Other)
  Sender: FDA-Public Use
  Company Number: LTI2004A00055

PATIENT
  Age: 78 Year
  Sex: Male

DRUGS (2)
  1. LEUPROLIDE ACETATE [Suspect]
     Indication: PROSTATE CANCER
     Dosage: 25 MG (11.25 MG, 1 IN 3 M)
     Route: 058
     Dates: start: 20020814
  2. FLUTAMIDE [Concomitant]

REACTIONS (1)
  - NEOPLASM MALIGNANT [None]
